FAERS Safety Report 4962270-0 (Version None)
Quarter: 2006Q2

REPORT INFORMATION
  Report Type: 
  Country: None (occurrence: None)
  Receive Date: 20060404
  Receipt Date: 20060221
  Transmission Date: 20061013
  Serious: Yes (Hospitalization)
  Sender: FDA-Public Use
  Company Number: IT-AVENTIS-200611034EU

PATIENT
  Age: 74 Year
  Sex: Female

DRUGS (2)
  1. RILUTEK [Suspect]
     Indication: AMYOTROPHIC LATERAL SCLEROSIS
     Route: 048
     Dates: start: 20060101
  2. RILUTEK [Suspect]
     Route: 048
     Dates: start: 20060115, end: 20060123

REACTIONS (3)
  - DERMATITIS ALLERGIC [None]
  - RASH PAPULAR [None]
  - SKIN EXFOLIATION [None]
